FAERS Safety Report 8347420-0 (Version None)
Quarter: 2012Q2

REPORT INFORMATION
  Report Type: 
  Country: None (occurrence: None)
  Receive Date: 20120509
  Receipt Date: 20120418
  Transmission Date: 20120825
  Serious: Yes (Other)
  Sender: FDA-Public Use
  Company Number: US-ROCHE-1061285

PATIENT
  Sex: Female
  Weight: 77.18 kg

DRUGS (4)
  1. CELEXA [Concomitant]
     Indication: DEPRESSION
     Route: 048
     Dates: start: 20110110
  2. ADVAIR HFA [Concomitant]
     Indication: ASTHMA
     Dosage: 230/21, 2 PUFFS
     Route: 048
     Dates: start: 20110106
  3. XOLAIR [Suspect]
     Indication: ASTHMA
     Dosage: LAST DOSE RECEIVED ON 16/APR/2012
     Route: 058
     Dates: start: 20111207
  4. CLARITIN [Concomitant]
     Indication: RHINITIS ALLERGIC
     Route: 048
     Dates: start: 20120101

REACTIONS (5)
  - INFLAMMATION [None]
  - SERUM SICKNESS [None]
  - JOINT SWELLING [None]
  - MUSCULOSKELETAL PAIN [None]
  - ARTHRALGIA [None]
